FAERS Safety Report 18310952 (Version 2)
Quarter: 2020Q4

REPORT INFORMATION
  Report Type: Spontaneous
  Country: PT (occurrence: PT)
  Receive Date: 20200925
  Receipt Date: 20201015
  Transmission Date: 20210113
  Serious: Yes (Hospitalization)
  Sender: FDA-Public Use
  Company Number: PT-TEVA-2020-PT-1832913

PATIENT
  Age: 11 Year
  Sex: Female

DRUGS (1)
  1. METHOTREXATE. [Suspect]
     Active Substance: METHOTREXATE
     Indication: NON-HODGKIN^S LYMPHOMA
     Dosage: HIGH-DOSE
     Route: 042

REACTIONS (6)
  - Ataxia [Recovered/Resolved]
  - Hemiparesis [Recovered/Resolved]
  - Neurotoxicity [Recovered/Resolved]
  - Facial paresis [Recovered/Resolved]
  - Cerebral ischaemia [Recovered/Resolved]
  - Dysarthria [Recovered/Resolved]
